FAERS Safety Report 6975044-6 (Version None)
Quarter: 2010Q3

REPORT INFORMATION
  Report Type: 
  Country: None (occurrence: None)
  Receive Date: 20100910
  Receipt Date: 20090203
  Transmission Date: 20110219
  Serious: No
  Sender: FDA-Public Use
  Company Number: US-WYE-H08070709

PATIENT
  Sex: Female
  Weight: 81.72 kg

DRUGS (2)
  1. ADVIL PM [Suspect]
     Route: 048
     Dates: start: 20090201, end: 20090201
  2. PREVACID [Concomitant]

REACTIONS (2)
  - HALLUCINATION [None]
  - NIGHTMARE [None]
